FAERS Safety Report 17144560 (Version 1)
Quarter: 2019Q4

REPORT INFORMATION
  Report Type: Spontaneous
  Country: JP (occurrence: JP)
  Receive Date: 20191212
  Receipt Date: 20191212
  Transmission Date: 20200122
  Serious: Yes (Death, Hospitalization, Other)
  Sender: FDA-Public Use
  Company Number: JP-PFIZER INC-2019297079

PATIENT
  Age: 60 Year
  Sex: Male

DRUGS (2)
  1. XALKORI [Suspect]
     Active Substance: CRIZOTINIB
     Indication: NON-SMALL CELL LUNG CANCER METASTATIC
     Dosage: 500 MG, DAILY
     Dates: start: 20190509, end: 2019
  2. XALKORI [Suspect]
     Active Substance: CRIZOTINIB
     Dosage: 250 MG, DAILY
     Dates: start: 2019, end: 20191205

REACTIONS (6)
  - Neoplasm progression [Fatal]
  - Herpes zoster [Unknown]
  - Weight decreased [Unknown]
  - Pneumonia [Recovering/Resolving]
  - Taste disorder [Unknown]
  - Hypophagia [Unknown]

NARRATIVE: CASE EVENT DATE: 2019
